FAERS Safety Report 18276833 (Version 1)
Quarter: 2020Q3

REPORT INFORMATION
  Report Type: Spontaneous
  Country: CA (occurrence: CA)
  Receive Date: 20200917
  Receipt Date: 20200917
  Transmission Date: 20201103
  Serious: Yes (Other)
  Sender: FDA-Public Use
  Company Number: CA-B.I. PHARMACEUTICALS,INC./RIDGEFIELD-2020-BI-047402

PATIENT
  Age: 34 Year
  Sex: Female

DRUGS (6)
  1. FLUTICASONE. [Suspect]
     Active Substance: FLUTICASONE
     Indication: PRODUCT USED FOR UNKNOWN INDICATION
  2. XOLAIR [Suspect]
     Active Substance: OMALIZUMAB
     Indication: ASTHMA
  3. ZENHALE [Suspect]
     Active Substance: FORMOTEROL FUMARATE\MOMETASONE FUROATE
     Indication: ASTHMA
     Dosage: FORM ? AEROSOL, METERED DOSE, UNIT DOSE ? 2 DOSAGE FORM
  4. SINGULAIR [Suspect]
     Active Substance: MONTELUKAST SODIUM
     Indication: PRODUCT USED FOR UNKNOWN INDICATION
  5. SPIRIVA [Suspect]
     Active Substance: TIOTROPIUM BROMIDE MONOHYDRATE
     Indication: PRODUCT USED FOR UNKNOWN INDICATION
  6. RUPALL [Suspect]
     Active Substance: RUPATADINE FUMARATE
     Indication: PRODUCT USED FOR UNKNOWN INDICATION
     Dosage: UNIT DOSE ? 1 DOSAGE FORM

REACTIONS (18)
  - Expiratory reserve volume decreased [Unknown]
  - Eye pruritus [Unknown]
  - Overweight [Unknown]
  - Upper respiratory tract infection [Unknown]
  - Weight increased [Unknown]
  - Pneumonia [Unknown]
  - Sinonasal obstruction [Unknown]
  - Sinusitis [Unknown]
  - Therapeutic product effect incomplete [Unknown]
  - Upper-airway cough syndrome [Unknown]
  - Sleep apnoea syndrome [Unknown]
  - Aphonia [Unknown]
  - Condition aggravated [Unknown]
  - Dyspnoea [Unknown]
  - Asthma [Unknown]
  - Pharyngitis [Unknown]
  - Obstructive airways disorder [Unknown]
  - Hypersensitivity [Unknown]
